FAERS Safety Report 11184036 (Version 1)
Quarter: 2015Q2

REPORT INFORMATION
  Report Type: Spontaneous
  Country: AU (occurrence: None)
  Receive Date: 20150610
  Receipt Date: 20150610
  Transmission Date: 20150821
  Serious: Yes (Hospitalization)
  Sender: FDA-Public Use
  Company Number: FK201502650

PATIENT
  Age: 50 Year
  Sex: Male

DRUGS (12)
  1. CORTICOSTEROIDS (CORTICOSTEROIDS) (CORTICOSTEROIDS) [Suspect]
     Active Substance: CORTICOSTEROID NOS
     Indication: DERMATITIS
     Route: 061
  2. AZATHIOPRINE (AZATHIOPRINE) (AZATHIOPRINE) [Suspect]
     Active Substance: AZATHIOPRINE
     Indication: DERMATITIS
     Route: 048
  3. DAPSONE (DAPSONE) (DAPSONE) [Suspect]
     Active Substance: DAPSONE
     Indication: DERMATITIS
     Route: 048
  4. DAPSONE (DAPSONE) (DAPSONE) [Suspect]
     Active Substance: DAPSONE
     Indication: BASAL CELL CARCINOMA
     Route: 048
  5. AZATHIOPRINE (AZATHIOPRINE) (AZATHIOPRINE) [Suspect]
     Active Substance: AZATHIOPRINE
     Indication: BASAL CELL CARCINOMA
     Route: 048
  6. CYCLOSPORINE (CICLOSPORIN) (CICLOSPORIN) [Suspect]
     Active Substance: CYCLOSPORINE
     Indication: DERMATITIS
  7. METHOTREXATE (MANUFACTURER UNKNOWN) (METHOTREXATE) (METHOTREXATE) [Suspect]
     Active Substance: METHOTREXATE
     Indication: BASAL CELL CARCINOMA
  8. CYCLOSPORINE (CICLOSPORIN) (CICLOSPORIN) [Suspect]
     Active Substance: CYCLOSPORINE
     Indication: BASAL CELL CARCINOMA
  9. METHOTREXATE (MANUFACTURER UNKNOWN) (METHOTREXATE) (METHOTREXATE) [Suspect]
     Active Substance: METHOTREXATE
     Indication: DERMATITIS
  10. CORTICOSTEROIDS (CORTICOSTEROIDS) (CORTICOSTEROIDS) [Suspect]
     Active Substance: CORTICOSTEROID NOS
     Indication: BASAL CELL CARCINOMA
     Route: 061
  11. PREDNISOLONE (PREDNISOLONE) (PREDNISOLONE) [Suspect]
     Active Substance: PREDNISOLONE
     Indication: DERMATITIS
     Route: 048
  12. PREDNISOLONE (PREDNISOLONE) (PREDNISOLONE) [Suspect]
     Active Substance: PREDNISOLONE
     Indication: BASAL CELL CARCINOMA
     Route: 048

REACTIONS (4)
  - Gingival hypertrophy [None]
  - Squamous cell carcinoma [None]
  - Renal impairment [None]
  - Neuropathy peripheral [None]
